FAERS Safety Report 7658416-6 (Version None)
Quarter: 2011Q3

REPORT INFORMATION
  Report Type: 
  Country: None (occurrence: None)
  Receive Date: 20110805
  Receipt Date: 20110727
  Transmission Date: 20111222
  Serious: Yes (Other)
  Sender: FDA-Public Use
  Company Number: CN-ASTELLAS-2011JP005196

PATIENT
  Age: 12 Year
  Sex: Male

DRUGS (2)
  1. TACROLIMUS [Suspect]
     Indication: NEPHROTIC SYNDROME
     Dosage: 1 MG, BID
     Route: 065
  2. TACROLIMUS [Suspect]
     Dosage: 1 MG, BID
     Route: 065

REACTIONS (1)
  - RHABDOMYOLYSIS [None]
